FAERS Safety Report 8595612-8 (Version None)
Quarter: 2012Q3

REPORT INFORMATION
  Report Type: 
  Country: None (occurrence: None)
  Receive Date: 20120801
  Receipt Date: 20120723
  Transmission Date: 20120928
  Serious: Yes (Other)
  Sender: FDA-Public Use
  Company Number: 2012HGS-003825

PATIENT
  Sex: Female
  Weight: 79.8331 kg

DRUGS (15)
  1. METHOTREXATE SODIUM [Concomitant]
  2. FOLIC ACID [Concomitant]
  3. AMBIEN [Concomitant]
  4. COMBIGAN (COMBIGAN) (TIMOLOL MALEATE, BRIMONIDINE TARTRATE) [Concomitant]
  5. PROBIOTICS (PROBIOTICS [Concomitant]
  6. PAMINE (HYOSCINE METHOBROMIDE) (HYOSCINE METHOBROMIDE) [Concomitant]
  7. DIOVAN [Concomitant]
  8. ANTIVERT (ANCOVERT) (NICOTINIC ACID, MECLOZINE HYDROCHLORIDE) [Concomitant]
  9. AMLODIPINE BESILATE (AMLODIPINE BESILATE) (AMLODIPINE BESILATE) [Concomitant]
  10. TOPROL (METOPROLOL SUCCINATE) (METOPROLOL SUCCINATE) [Concomitant]
  11. PREDNISONE [Concomitant]
  12. SYNTHROID (LEVOTHYROXINE SODIUM) (LEVOTHYROXINE SODIUM) [Concomitant]
  13. ZOLOFT [Concomitant]
  14. BENLYSTA [Suspect]
     Dosage: INTRAVENOUS DRIP
     Route: 041
     Dates: start: 20110915
  15. DEILANT (DEXALANSOPRAZOLE (DEXLANSOPRAZOLE) [Concomitant]

REACTIONS (8)
  - APPENDIX DISORDER [None]
  - BLOOD GLUCOSE FLUCTUATION [None]
  - HYPOGLYCAEMIA [None]
  - DIARRHOEA [None]
  - PANCREATIC CYST [None]
  - PANCREATIC NEOPLASM [None]
  - DIVERTICULITIS [None]
  - MUSCLE SPASMS [None]
